FAERS Safety Report 10264596 (Version 1)
Quarter: 2014Q2

REPORT INFORMATION
  Report Type: Spontaneous
  Country: US (occurrence: US)
  Receive Date: 20140627
  Receipt Date: 20140627
  Transmission Date: 20141212
  Serious: Yes (Death)
  Sender: FDA-Public Use
  Company Number: PHEH2014US012669

PATIENT
  Sex: Male

DRUGS (2)
  1. AFINITOR [Suspect]
     Indication: MALIGNANT NEOPLASM OF RENAL PELVIS
     Route: 048
  2. VOTRIENT [Suspect]
     Indication: MALIGNANT NEOPLASM OF RENAL PELVIS
     Dosage: 800 MG, PER DAY
     Route: 048
     Dates: start: 201203, end: 201312

REACTIONS (2)
  - Intestinal perforation [Fatal]
  - Clostridium difficile infection [Fatal]
